FAERS Safety Report 7853635-8 (Version None)
Quarter: 2011Q4

REPORT INFORMATION
  Report Type: 
  Country: None (occurrence: None)
  Receive Date: 20111026
  Receipt Date: 20111020
  Transmission Date: 20120403
  Serious: Yes (Other)
  Sender: FDA-Public Use
  Company Number: US-PFIZER INC-2011254386

PATIENT
  Age: 49 Year
  Sex: Female
  Weight: 90.703 kg

DRUGS (2)
  1. LYRICA [Suspect]
     Indication: FIBROMYALGIA
     Dosage: 75 MG, 3X/DAY
     Route: 048
     Dates: end: 20110101
  2. LYRICA [Suspect]
     Indication: PAIN

REACTIONS (1)
  - DYSPHEMIA [None]
